FAERS Safety Report 24782536 (Version 1)
Quarter: 2024Q4

REPORT INFORMATION
  Report Type: Spontaneous
  Country: GB (occurrence: GB)
  Receive Date: 20241227
  Receipt Date: 20241227
  Transmission Date: 20250115
  Serious: Yes (Other)
  Sender: TEVA
  Company Number: None

PATIENT
  Age: 64 Year
  Sex: Female

DRUGS (1)
  1. DOXYCYCLINE [Suspect]
     Active Substance: DOXYCYCLINE
     Indication: Product used for unknown indication
     Dosage: 100MG
     Route: 065
     Dates: start: 20241211, end: 20241215

REACTIONS (2)
  - Diarrhoea [Not Recovered/Not Resolved]
  - Prophylaxis of nausea and vomiting [Recovering/Resolving]

NARRATIVE: CASE EVENT DATE: 20241215
